FAERS Safety Report 18935510 (Version 1)
Quarter: 2021Q1

REPORT INFORMATION
  Report Type: Spontaneous
  Country: US (occurrence: US)
  Receive Date: 20210224
  Receipt Date: 20210224
  Transmission Date: 20210420
  Serious: No
  Sender: FDA-Public Use
  Company Number: US-TERSERA THERAPEUTICS LLC-2020TRS000600

PATIENT

DRUGS (3)
  1. PRIALT [Suspect]
     Active Substance: ZICONOTIDE ACETATE
     Indication: PRODUCT USED FOR UNKNOWN INDICATION
     Dosage: 0.300 MCG, QD (1.5MCG/ML)
     Route: 037
  2. MORPHINE [Suspect]
     Active Substance: MORPHINE
     Dosage: 2.996 MG, QD
     Route: 065
  3. MORPHINE [Suspect]
     Active Substance: MORPHINE
     Indication: PRODUCT USED FOR UNKNOWN INDICATION
     Dosage: 5 MG, QD (WITH PTM OF 0.250MG X4/DAY)
     Route: 065

REACTIONS (1)
  - Off label use [Unknown]
